FAERS Safety Report 14651176 (Version 5)
Quarter: 2018Q3

REPORT INFORMATION
  Report Type: Report from Study
  Country: FR (occurrence: FR)
  Receive Date: 20180316
  Receipt Date: 20180711
  Transmission Date: 20181010
  Serious: Yes (Death, Hospitalization, Other)
  Sender: FDA-Public Use
  Company Number: FR-GILEAD-2018-0317568AA

PATIENT
  Age: 73 Year
  Sex: Male

DRUGS (11)
  1. GAZYVARO [Suspect]
     Active Substance: OBINUTUZUMAB
     Dosage: 1000 MG, CYCLICAL (D1C5)
     Route: 041
     Dates: start: 20170711, end: 20170711
  2. VALGANCICLOVIR. [Concomitant]
     Active Substance: VALGANCICLOVIR
     Route: 065
  3. GAZYVARO [Suspect]
     Active Substance: OBINUTUZUMAB
     Dosage: 1000 MG, CYCLICAL (D1C4)
     Route: 041
     Dates: start: 20170613, end: 20170613
  4. IDELALISIB [Suspect]
     Active Substance: IDELALISIB
     Dosage: 300 MG, QD
     Route: 048
     Dates: start: 20170613, end: 20171219
  5. GAZYVARO [Suspect]
     Active Substance: OBINUTUZUMAB
     Dosage: 1000 MG, CYCLICAL (D8)
     Route: 041
     Dates: start: 20170328, end: 20170328
  6. GAZYVARO [Suspect]
     Active Substance: OBINUTUZUMAB
     Dosage: 1000 MG, CYCLICAL (D1C3)
     Route: 041
     Dates: start: 20170516, end: 20180516
  7. IDELALISIB [Suspect]
     Active Substance: IDELALISIB
     Indication: WALDENSTROM^S MACROGLOBULINAEMIA
     Dosage: 300 MG, QD
     Route: 048
     Dates: start: 20170321, end: 20170516
  8. GAZYVARO [Suspect]
     Active Substance: OBINUTUZUMAB
     Indication: WALDENSTROM^S MACROGLOBULINAEMIA
     Dosage: 1000 MG, CYCLICAL
     Route: 041
     Dates: start: 20170321
  9. GAZYVARO [Suspect]
     Active Substance: OBINUTUZUMAB
     Dosage: 1000 MG, CYCLICAL (D1C2)
     Route: 041
     Dates: start: 20170418, end: 20170418
  10. GAZYVARO [Suspect]
     Active Substance: OBINUTUZUMAB
     Dosage: 1000 MG, CYCLICAL (D15)
     Route: 041
     Dates: start: 20170404, end: 20170404
  11. GAZYVARO [Suspect]
     Active Substance: OBINUTUZUMAB
     Dosage: 1000 MG, CYCLICAL (CYCLE 6)
     Route: 041
     Dates: start: 20170808, end: 20170808

REACTIONS (3)
  - Acute coronary syndrome [Not Recovered/Not Resolved]
  - Septic shock [Fatal]
  - Pneumonia [Not Recovered/Not Resolved]

NARRATIVE: CASE EVENT DATE: 20171219
